FAERS Safety Report 14814199 (Version 1)
Quarter: 2018Q2

REPORT INFORMATION
  Report Type: Spontaneous
  Country: ES (occurrence: ES)
  Receive Date: 20180426
  Receipt Date: 20180426
  Transmission Date: 20180711
  Serious: Yes (Congenital Anomaly, Other)
  Sender: FDA-Public Use
  Company Number: ES-ACCORD-066220

PATIENT
  Sex: Male

DRUGS (2)
  1. DIAZEPAM. [Suspect]
     Active Substance: DIAZEPAM
     Indication: PSYCHIATRIC DECOMPENSATION
     Route: 064
  2. CLOZAPINE. [Suspect]
     Active Substance: CLOZAPINE
     Indication: SCHIZOAFFECTIVE DISORDER
     Dosage: ALSO RECEIVED 200 MG DAILY
     Route: 064
     Dates: start: 2015

REACTIONS (5)
  - Neonatal respiratory distress [Unknown]
  - Developmental delay [Unknown]
  - Cryptorchism [Unknown]
  - Inguinal hernia [Unknown]
  - Foetal exposure during pregnancy [Unknown]
